FAERS Safety Report 7124710-0 (Version None)
Quarter: 2010Q4

REPORT INFORMATION
  Report Type: 
  Country: None (occurrence: None)
  Receive Date: 20101122
  Receipt Date: 20101122
  Transmission Date: 20110411
  Serious: Yes (Other)
  Sender: FDA-Public Use
  Company Number: None

PATIENT
  Age: 52 Year
  Sex: Female
  Weight: 63.05 kg

DRUGS (1)
  1. XYZAL [Suspect]
     Indication: LICHEN PLANUS
     Dosage: ONE TABLET BY MOUTH ONE TIME A DAY PO
     Route: 048
     Dates: start: 20100627, end: 20101107

REACTIONS (5)
  - INSOMNIA [None]
  - PRURITUS [None]
  - RASH ERYTHEMATOUS [None]
  - SCAB [None]
  - SCRATCH [None]
